FAERS Safety Report 16486267 (Version 1)
Quarter: 2019Q2

REPORT INFORMATION
  Report Type: Spontaneous
  Country: US (occurrence: US)
  Receive Date: 20190627
  Receipt Date: 20190627
  Transmission Date: 20190711
  Serious: No
  Sender: FDA-Public Use
  Company Number: US-GALDERMA-US18034375

PATIENT
  Age: 29 Year
  Sex: Female

DRUGS (5)
  1. PROACTIV MD DEEP CLEANSING FACE WASH [Concomitant]
     Active Substance: COSMETICS
     Indication: SKIN TEXTURE ABNORMAL
     Route: 061
     Dates: start: 20180525, end: 201807
  2. PROACTIV MD ADAPALENE ACNE TREATMENT [Suspect]
     Active Substance: ADAPALENE
     Indication: SKIN TEXTURE ABNORMAL
     Dosage: 0.1%
     Route: 061
     Dates: start: 20180525, end: 201807
  3. PROACTIV GREEN TEA MOISTURIZER [Concomitant]
     Active Substance: COSMETICS
     Indication: SKIN TEXTURE ABNORMAL
     Route: 061
     Dates: start: 20180525, end: 201807
  4. PROACTIV MD DAILY OIL CONTROL SPF 30 [Suspect]
     Active Substance: AVOBENZONE\OCTISALATE\OCTOCRYLENE
     Indication: SKIN TEXTURE ABNORMAL
     Route: 061
     Dates: start: 20180525, end: 201807
  5. PROACTIV SKIN PURIFYING MASK [Concomitant]
     Active Substance: SULFUR
     Indication: SKIN TEXTURE ABNORMAL
     Route: 061
     Dates: start: 20180525, end: 201807

REACTIONS (4)
  - Skin irritation [Recovered/Resolved]
  - Product use in unapproved indication [Recovered/Resolved]
  - Inappropriate schedule of product administration [Recovered/Resolved]
  - Underdose [Recovered/Resolved]

NARRATIVE: CASE EVENT DATE: 20180525
